FAERS Safety Report 14721493 (Version 1)
Quarter: 2018Q1

REPORT INFORMATION
  Report Type: Spontaneous
  Country: US (occurrence: US)
  Receive Date: 20180331
  Receipt Date: 20180331
  Transmission Date: 20180509
  Serious: No
  Sender: FDA-Public Use
  Company Number: None

PATIENT
  Age: 53 Year
  Sex: Male
  Weight: 123.75 kg

DRUGS (1)
  1. TRULICITY [Suspect]
     Active Substance: DULAGLUTIDE
     Indication: DIABETES MELLITUS
     Dosage: ?          QUANTITY:1 INJECTION(S);OTHER FREQUENCY:WEEKLY;OTHER ROUTE:INJECTED ON THIGH?
     Dates: start: 20180310, end: 20180324

REACTIONS (3)
  - Postmenopausal haemorrhage [None]
  - Pruritus [None]
  - Menorrhagia [None]

NARRATIVE: CASE EVENT DATE: 20180320
